FAERS Safety Report 22275087 (Version 1)
Quarter: 2023Q2

REPORT INFORMATION
  Report Type: Spontaneous
  Country: TH (occurrence: TH)
  Receive Date: 20230502
  Receipt Date: 20230502
  Transmission Date: 20230722
  Serious: Yes (Other)
  Sender: FDA-Public Use
  Company Number: TH-BAYER-2023A055735

PATIENT
  Age: 70 Year
  Sex: Female

DRUGS (1)
  1. STIVARGA [Suspect]
     Active Substance: REGORAFENIB
     Dosage: UNK

REACTIONS (6)
  - Palmar-plantar erythrodysaesthesia syndrome [Recovering/Resolving]
  - Lower gastrointestinal haemorrhage [None]
  - Mass [None]
  - Adenocarcinoma [None]
  - Diarrhoea [Recovering/Resolving]
  - Hypertension [None]

NARRATIVE: CASE EVENT DATE: 20150101
